FAERS Safety Report 17238086 (Version 1)
Quarter: 2020Q1

REPORT INFORMATION
  Report Type: Spontaneous
  Country: US (occurrence: US)
  Receive Date: 20200106
  Receipt Date: 20200106
  Transmission Date: 20200409
  Serious: No
  Sender: FDA-Public Use
  Company Number: US-PACIRA-201900247

PATIENT
  Sex: Male

DRUGS (2)
  1. EXPAREL [Suspect]
     Active Substance: BUPIVACAINE
     Indication: POSTOPERATIVE ANALGESIA
     Dosage: 266 MG, 20 ML DOSE OF EXPAREL WITH 20 ML OF ROPIVACAINE 0.25%
  2. ROPIVACAIN [Concomitant]
     Active Substance: ROPIVACAINE
     Indication: POSTOPERATIVE ANALGESIA
     Dosage: 20 ML OF ROPIVACAINE 0.25% MIXED WITH 266MG (20 ML) OF EXPAREL

REACTIONS (3)
  - Discomfort [Not Recovered/Not Resolved]
  - Labelled drug-drug interaction medication error [Unknown]
  - Drug ineffective [Unknown]
